FAERS Safety Report 9985966 (Version 1)
Quarter: 2014Q1

REPORT INFORMATION
  Report Type: Report from Study
  Country: US (occurrence: US)
  Receive Date: 20140307
  Receipt Date: 20140307
  Transmission Date: 20141002
  Serious: No
  Sender: FDA-Public Use
  Company Number: US-ABBVIE-13P-163-1086157-00

PATIENT
  Age: 54 Year
  Sex: Female

DRUGS (7)
  1. HUMIRA [Suspect]
     Indication: CROHN^S DISEASE
     Dosage: LOADING DOSE
     Dates: start: 20130501
  2. ZOLOFT [Concomitant]
     Indication: DEPRESSION
     Dosage: 200MG DAILY
  3. IMURAN [Concomitant]
     Indication: CROHN^S DISEASE
     Dosage: 50MG DAILY (BEING PHASED OUT OF THIS)
  4. METFORMIN [Concomitant]
     Indication: DIABETES MELLITUS
  5. GLYBURIDE [Concomitant]
     Indication: DIABETES MELLITUS
  6. TRAZODONE [Concomitant]
     Indication: INSOMNIA
     Dosage: 100/200 MG AT NIGHT
  7. METRONIDAZOLE [Concomitant]
     Indication: CROHN^S DISEASE

REACTIONS (3)
  - Injection site bruising [Recovering/Resolving]
  - Increased tendency to bruise [Recovering/Resolving]
  - Injection site pain [Recovering/Resolving]
